FAERS Safety Report 5077816-4 (Version None)
Quarter: 2006Q3

REPORT INFORMATION
  Report Type: 
  Country: None (occurrence: None)
  Receive Date: 20060803
  Receipt Date: 20060719
  Transmission Date: 20061208
  Serious: Yes (Hospitalization, Other)
  Sender: FDA-Public Use
  Company Number: 2006BH011835

PATIENT
  Age: 4 Month
  Sex: Male
  Weight: 7.37 kg

DRUGS (3)
  1. GAMMAGARD LIQUID [Suspect]
     Indication: KAWASAKI'S DISEASE
     Dosage: 2 UNK; ONCE; IV
     Route: 042
     Dates: start: 20060324, end: 20060325
  2. REMICADE [Concomitant]
  3. ACETYLSALICYLIC ACID SRT [Concomitant]

REACTIONS (2)
  - PYREXIA [None]
  - THERAPY NON-RESPONDER [None]
